FAERS Safety Report 21283088 (Version 1)
Quarter: 2022Q3

REPORT INFORMATION
  Report Type: Spontaneous
  Country: US (occurrence: None)
  Receive Date: 20220901
  Receipt Date: 20220901
  Transmission Date: 20221026
  Serious: Yes (Other)
  Sender: FDA-Public Use
  Company Number: None

PATIENT
  Age: 88 Year
  Sex: Male
  Weight: 87.3 kg

DRUGS (6)
  1. REVLIMID [Suspect]
     Active Substance: LENALIDOMIDE
     Indication: Myelodysplastic syndrome
     Dosage: FREQUENCY : DAILY;?
     Route: 048
     Dates: start: 20220802, end: 20220812
  2. GABAPENTIN [Concomitant]
     Active Substance: GABAPENTIN
  3. megestrol 40mg [Concomitant]
  4. metoprolol ER 50mg [Concomitant]
  5. pepcid 40mg [Concomitant]
  6. XARELTO [Concomitant]
     Active Substance: RIVAROXABAN

REACTIONS (1)
  - Rash [None]

NARRATIVE: CASE EVENT DATE: 20220830
